FAERS Safety Report 6193767-6 (Version None)
Quarter: 2009Q2

REPORT INFORMATION
  Report Type: 
  Country: None (occurrence: None)
  Receive Date: 20090518
  Receipt Date: 20090508
  Transmission Date: 20091009
  Serious: Yes (Other)
  Sender: FDA-Public Use
  Company Number: CO-PFIZER INC-2009212299

PATIENT

DRUGS (1)
  1. NORVASC [Suspect]
     Route: 048
     Dates: start: 20090507

REACTIONS (1)
  - ANURIA [None]
